FAERS Safety Report 7072369-3 (Version None)
Quarter: 2010Q4

REPORT INFORMATION
  Report Type: 
  Country: None (occurrence: None)
  Receive Date: 20101029
  Receipt Date: 20100118
  Transmission Date: 20110411
  Serious: No
  Sender: FDA-Public Use
  Company Number: A0839957A

PATIENT
  Age: 68 Year
  Sex: Female

DRUGS (6)
  1. ADVAIR DISKUS 100/50 [Suspect]
     Indication: LUNG DISORDER
     Dosage: 1PUFF TWICE PER DAY
     Route: 055
     Dates: start: 20091201
  2. CARDIZEM LA [Concomitant]
  3. ZETIA [Concomitant]
  4. NEXIUM [Concomitant]
  5. PEPCID [Concomitant]
  6. ESTRACE [Concomitant]

REACTIONS (1)
  - DYSPHONIA [None]
